FAERS Safety Report 15742593 (Version 3)
Quarter: 2019Q1

REPORT INFORMATION
  Report Type: Report from Study
  Country: None (occurrence: RO)
  Receive Date: 20181219
  Receipt Date: 20190222
  Transmission Date: 20190417
  Serious: Yes (Hospitalization)
  Sender: FDA-Public Use
  Company Number: RO-ABBVIE-18P-135-2594469-00

PATIENT
  Age: 65 Year
  Sex: Male
  Weight: 78 kg

DRUGS (13)
  1. MILLGAMMA N [Concomitant]
     Indication: NERVOUS SYSTEM DISORDER
     Route: 048
     Dates: start: 20170626, end: 20181115
  2. RIVOTRIL [Concomitant]
     Active Substance: CLONAZEPAM
     Indication: ANXIOLYTIC THERAPY
     Route: 048
     Dates: start: 20181116
  3. LOKREN [Concomitant]
     Active Substance: BETAXOLOL HYDROCHLORIDE
     Indication: HYPERTENSION
     Route: 048
     Dates: start: 2015
  4. GABARAN [Concomitant]
     Active Substance: GABAPENTIN
     Indication: POLYNEUROPATHY
     Route: 048
     Dates: start: 20181116
  5. ISICOM [Concomitant]
     Active Substance: CARBIDOPA\LEVODOPA
     Indication: PARKINSON^S DISEASE
     Route: 048
     Dates: start: 20010623, end: 20170608
  6. VENTER [Concomitant]
     Indication: GASTRIC ULCER
     Route: 048
     Dates: start: 20181016
  7. ANXIAR [Concomitant]
     Active Substance: LORAZEPAM
     Indication: ANXIOLYTIC THERAPY
     Route: 048
     Dates: start: 20170623, end: 20181115
  8. ISICOM [Concomitant]
     Active Substance: CARBIDOPA\LEVODOPA
     Route: 048
     Dates: start: 20181116
  9. LEPONEX [Concomitant]
     Active Substance: CLOZAPINE
     Indication: PSYCHIATRIC DISORDER PROPHYLAXIS
     Route: 048
     Dates: start: 2016, end: 20181115
  10. SEROQUEL [Concomitant]
     Active Substance: QUETIAPINE FUMARATE
     Indication: PSYCHIATRIC DISORDER PROPHYLAXIS
     Route: 048
     Dates: start: 2017
  11. VITAMIN B12 [Concomitant]
     Active Substance: CYANOCOBALAMIN
     Indication: VITAMIN B12 DEFICIENCY
     Dosage: FREQUENCY: 2 VIALS PER MONTH
     Route: 030
     Dates: start: 2017
  12. DUODOPA [Suspect]
     Active Substance: CARBIDOPA\LEVODOPA
     Indication: PARKINSON^S DISEASE
     Dosage: TITRATION: DOSING AT END OF TITRATION: MD: 9.5 ML, CD: 4 ML/F, ED: 2.2 ML 2X/D, 16 H
     Route: 050
     Dates: start: 20170608, end: 20170618
  13. DUODOPA [Suspect]
     Active Substance: CARBIDOPA\LEVODOPA
     Route: 050
     Dates: start: 20170619

REACTIONS (2)
  - Weight decreased [Not Recovered/Not Resolved]
  - On and off phenomenon [Not Recovered/Not Resolved]

NARRATIVE: CASE EVENT DATE: 201811
